FAERS Safety Report 7221465-6 (Version None)
Quarter: 2011Q1

REPORT INFORMATION
  Report Type: 
  Country: None (occurrence: None)
  Receive Date: 20110112
  Receipt Date: 20101230
  Transmission Date: 20110831
  Serious: Yes (Hospitalization, Other)
  Sender: FDA-Public Use
  Company Number: US-SANOFI-AVENTIS-2011SA000121

PATIENT
  Age: 56 Year
  Sex: Female

DRUGS (9)
  1. ASPIRIN [Suspect]
     Route: 065
     Dates: end: 20101201
  2. LOTENSIN [Concomitant]
  3. COUMADIN [Suspect]
     Indication: ATRIAL FIBRILLATION
     Route: 065
     Dates: start: 20050101
  4. LOPRESSOR [Concomitant]
  5. PLAVIX [Suspect]
     Route: 048
     Dates: start: 20030101, end: 20101201
  6. GLUCOPHAGE [Concomitant]
  7. NORVASC [Concomitant]
  8. ZOLOFT [Concomitant]
  9. LEVAQUIN [Concomitant]

REACTIONS (5)
  - CEREBROVASCULAR ACCIDENT [None]
  - HAEMORRHAGE [None]
  - LIGAMENT INJURY [None]
  - INTERNATIONAL NORMALISED RATIO INCREASED [None]
  - ATRIAL FIBRILLATION [None]
